FAERS Safety Report 9842687 (Version 4)
Quarter: 2014Q2

REPORT INFORMATION
  Report Type: Spontaneous
  Country: US (occurrence: US)
  Receive Date: 20140124
  Receipt Date: 20140530
  Transmission Date: 20141212
  Serious: Yes (Hospitalization, Other)
  Sender: FDA-Public Use
  Company Number: US-PFIZER INC-2014021303

PATIENT
  Age: 83 Year
  Sex: Female

DRUGS (3)
  1. TOVIAZ [Suspect]
     Indication: URINARY INCONTINENCE
     Dosage: 8 MG, 1X/DAY
     Dates: start: 2013
  2. TOVIAZ [Suspect]
     Indication: RENAL DISORDER
  3. OXYBUTYNIN [Suspect]
     Indication: URINARY INCONTINENCE
     Dosage: UNK, 3X/DAY

REACTIONS (5)
  - Bladder disorder [Unknown]
  - Loss of consciousness [Unknown]
  - Renal disorder [Recovering/Resolving]
  - Urinary incontinence [Not Recovered/Not Resolved]
  - Drug ineffective [Not Recovered/Not Resolved]
